FAERS Safety Report 7547046-2 (Version None)
Quarter: 2011Q2

REPORT INFORMATION
  Report Type: 
  Country: None (occurrence: None)
  Receive Date: 20110614
  Receipt Date: 20110608
  Transmission Date: 20111010
  Serious: Yes (Hospitalization, Disabling)
  Sender: FDA-Public Use
  Company Number: US-GILEAD-2011-0040010

PATIENT
  Sex: Female

DRUGS (15)
  1. PROAIR HFA [Concomitant]
  2. LETAIRIS [Suspect]
     Indication: CHRONIC OBSTRUCTIVE PULMONARY DISEASE
  3. EPOGEN [Concomitant]
  4. LETAIRIS [Suspect]
     Indication: PULMONARY ARTERIAL HYPERTENSION
     Route: 048
     Dates: start: 20100910, end: 20110509
  5. METOPROLOL [Concomitant]
  6. ZEMPLAR [Concomitant]
  7. FLUTICASONE PROPIONATE [Concomitant]
  8. PAROXETINE HYDROCHLORIDE [Concomitant]
  9. ISOSORBIDE [Concomitant]
  10. LEVOTHYROXINE SODIUM [Concomitant]
  11. SIMVASTATIN [Concomitant]
  12. LOSARTAN POTASSIUM [Concomitant]
  13. SPIRIVA [Concomitant]
  14. LEVEMIR [Concomitant]
  15. LETAIRIS [Suspect]
     Indication: CARDIAC DISORDER

REACTIONS (4)
  - ACUTE MYOCARDIAL INFARCTION [None]
  - PERIPHERAL ISCHAEMIA [None]
  - SEPTIC SHOCK [None]
  - VASCULAR GRAFT OCCLUSION [None]
